FAERS Safety Report 25603087 (Version 4)
Quarter: 2025Q3

REPORT INFORMATION
  Report Type: Report from Study
  Country: TR (occurrence: TR)
  Receive Date: 20250724
  Receipt Date: 20250826
  Transmission Date: 20251020
  Serious: Yes (Death)
  Sender: PFIZER
  Company Number: TR-PFIZER INC-202101002377

PATIENT
  Age: 77 Year
  Sex: Female

DRUGS (6)
  1. GLASDEGIB [Suspect]
     Active Substance: GLASDEGIB
     Indication: Acute myeloid leukaemia
     Dosage: 100 MG, 1X/DAY
     Route: 048
     Dates: start: 20210519, end: 20211022
  2. EBASTINE [Concomitant]
     Active Substance: EBASTINE
     Dosage: UNK, 2X/DAY
  3. PIRACETAM [Concomitant]
     Active Substance: PIRACETAM
     Dosage: UNK, 3X/DAY
  4. COZAAR [Concomitant]
     Active Substance: LOSARTAN POTASSIUM
     Dosage: UNK, 1X/DAY
  5. LOSARTAN [Concomitant]
     Active Substance: LOSARTAN
  6. INSULIN DETEMIR [Concomitant]
     Active Substance: INSULIN DETEMIR

REACTIONS (3)
  - Death [Fatal]
  - Nausea [Recovered/Resolved]
  - Dysgeusia [Unknown]

NARRATIVE: CASE EVENT DATE: 20220222
